FAERS Safety Report 4592786-0 (Version None)
Quarter: 2005Q1

REPORT INFORMATION
  Report Type: 
  Country: None (occurrence: None)
  Receive Date: 20050222
  Receipt Date: 20040210
  Transmission Date: 20050727
  Serious: Yes (Hospitalization)
  Sender: FDA-Public Use
  Company Number: 26184

PATIENT
  Age: 84 Year
  Sex: Male

DRUGS (1)
  1. FLECAINIDE ACETATE [Suspect]
     Indication: ATRIAL FIBRILLATION
     Dosage: 100 MG (100 MG, 1 IN 1 D (S)), ORAL
     Route: 048
     Dates: end: 20041216

REACTIONS (7)
  - ABDOMINAL MASS [None]
  - CHILLS [None]
  - HEPATIC LESION [None]
  - INTERSTITIAL LUNG DISEASE [None]
  - LUNG DISORDER [None]
  - LYMPHOMA [None]
  - RESPIRATORY DISTRESS [None]
